FAERS Safety Report 20611925 (Version 1)
Quarter: 2022Q1

REPORT INFORMATION
  Report Type: Spontaneous
  Country: US (occurrence: None)
  Receive Date: 20220318
  Receipt Date: 20220318
  Transmission Date: 20220424
  Serious: No
  Sender: FDA-Public Use
  Company Number: 2022A089899

PATIENT
  Age: 76 Year
  Sex: Male

DRUGS (1)
  1. OLAPARIB [Suspect]
     Active Substance: OLAPARIB
     Indication: Hormone-refractory prostate cancer
     Route: 048

REACTIONS (3)
  - Blood urea abnormal [Recovered/Resolved]
  - Cystatin C abnormal [Recovered/Resolved]
  - Blood creatinine abnormal [Recovered/Resolved]
